FAERS Safety Report 11353386 (Version 1)
Quarter: 2015Q3

REPORT INFORMATION
  Report Type: Spontaneous
  Country: US (occurrence: US)
  Receive Date: 20150807
  Receipt Date: 20150807
  Transmission Date: 20151125
  Serious: No
  Sender: FDA-Public Use
  Company Number: US-JNJFOC-20150115978

PATIENT
  Age: 60 Year
  Sex: Female
  Weight: 73.94 kg

DRUGS (2)
  1. WOMENS ROGAINE UNSCENTED [Suspect]
     Active Substance: MINOXIDIL
     Route: 061
  2. WOMENS ROGAINE UNSCENTED [Suspect]
     Active Substance: MINOXIDIL
     Indication: ALOPECIA
     Dosage: ENOUGH TO MOISTEN THE SCALP ONCE A DAY
     Route: 061

REACTIONS (3)
  - Wrong technique in product usage process [Unknown]
  - Product formulation issue [Unknown]
  - Accidental exposure to product [Unknown]
